FAERS Safety Report 4346425-4 (Version None)
Quarter: 2004Q1

REPORT INFORMATION
  Report Type: 
  Country: None (occurrence: None)
  Receive Date: 20040325
  Receipt Date: 20040112
  Transmission Date: 20041129
  Serious: No
  Sender: FDA-Public Use
  Company Number: USA040156349

PATIENT
  Age: 57 Year
  Sex: Female

DRUGS (8)
  1. FORTEO [Suspect]
     Indication: OSTEOPOROSIS
     Dosage: 20 UG/DAY
     Dates: start: 20031231
  2. ACTOS (PIOGLITAZONE) [Concomitant]
  3. FOSAMAX [Concomitant]
  4. MEDROL [Concomitant]
  5. XANAX [Concomitant]
  6. OXYCODONE [Concomitant]
  7. AXID [Concomitant]
  8. ENBREL [Concomitant]

REACTIONS (2)
  - INJECTION SITE PAIN [None]
  - NAUSEA [None]
